FAERS Safety Report 18071986 (Version 1)
Quarter: 2020Q3

REPORT INFORMATION
  Report Type: Spontaneous
  Country: US (occurrence: US)
  Receive Date: 20200725
  Receipt Date: 20200725
  Transmission Date: 20201103
  Serious: Yes (Other)
  Sender: FDA-Public Use
  Company Number: None

PATIENT
  Age: 52 Year
  Sex: Female
  Weight: 90 kg

DRUGS (16)
  1. COENZYME Q10 [Concomitant]
     Active Substance: DIETARY SUPPLEMENT\UBIDECARENONE
  2. REPATHA [Suspect]
     Active Substance: EVOLOCUMAB
     Indication: BLOOD CHOLESTEROL INCREASED
     Dosage: ?          QUANTITY:1 INJECTION(S);OTHER FREQUENCY:EVERY OTHER WEEK;?
     Route: 030
     Dates: start: 20200112, end: 20200209
  3. PROVIGIL [Concomitant]
     Active Substance: MODAFINIL
  4. PREVACID [Concomitant]
     Active Substance: LANSOPRAZOLE
  5. CRANBERRY EXTRACT [Concomitant]
     Active Substance: CRANBERRY JUICE
  6. PRAVASTATIN. [Concomitant]
     Active Substance: PRAVASTATIN
  7. KRILL [Concomitant]
  8. VITAMIN C [Concomitant]
     Active Substance: ASCORBIC ACID
  9. BABY ASPIRIN [Concomitant]
     Active Substance: ASPIRIN
  10. PROBIOTIC [Concomitant]
     Active Substance: PROBIOTICS NOS
  11. LEVOTHYROXINE. [Concomitant]
     Active Substance: LEVOTHYROXINE
  12. MULTI VITAMIN [Concomitant]
     Active Substance: VITAMINS
  13. MAGNESIUM [Concomitant]
     Active Substance: MAGNESIUM
  14. POTASSIUM CITRATE. [Concomitant]
     Active Substance: POTASSIUM CITRATE
  15. REMIFEMIN [Concomitant]
     Active Substance: BLACK COHOSH
  16. CLARITIN [Concomitant]
     Active Substance: LORATADINE

REACTIONS (1)
  - Muscle spasms [None]

NARRATIVE: CASE EVENT DATE: 20200210
